FAERS Safety Report 19899625 (Version 1)
Quarter: 2021Q3

REPORT INFORMATION
  Report Type: Spontaneous
  Country: US (occurrence: US)
  Receive Date: 20210929
  Receipt Date: 20210929
  Transmission Date: 20211014
  Serious: No
  Sender: FDA-Public Use
  Company Number: None

PATIENT
  Age: 80 Year
  Sex: Male
  Weight: 81 kg

DRUGS (2)
  1. IBUPROFEN (IBUPROFEN 100MG TAB) [Suspect]
     Active Substance: IBUPROFEN
     Indication: TOOTH EXTRACTION
     Dates: start: 20210630, end: 20210713
  2. AMOXICILLIN (AMOXICILLIN 500MG CAP) [Suspect]
     Active Substance: AMOXICILLIN
     Indication: TOOTH EXTRACTION
     Dates: start: 20210630, end: 20210713

REACTIONS (1)
  - Pemphigoid [None]

NARRATIVE: CASE EVENT DATE: 20210713
